FAERS Safety Report 7318751-8 (Version None)
Quarter: 2011Q1

REPORT INFORMATION
  Report Type: 
  Country: None (occurrence: None)
  Receive Date: 20110228
  Receipt Date: 20100430
  Transmission Date: 20110831
  Serious: No
  Sender: FDA-Public Use
  Company Number: A0849980A

PATIENT
  Age: 42 Year
  Sex: Female

DRUGS (2)
  1. IMITREX [Suspect]
     Indication: MIGRAINE
     Dosage: 6MGK AS REQUIRED
     Route: 058
     Dates: start: 19930101
  2. FLOVENT [Concomitant]

REACTIONS (5)
  - MUSCLE TIGHTNESS [None]
  - CHEST DISCOMFORT [None]
  - FLUSHING [None]
  - DRUG INEFFECTIVE [None]
  - PRODUCT QUALITY ISSUE [None]
